FAERS Safety Report 16572483 (Version 2)
Quarter: 2019Q3

REPORT INFORMATION
  Report Type: Report from Study
  Country: GB (occurrence: GB)
  Receive Date: 20190715
  Receipt Date: 20190719
  Transmission Date: 20191004
  Serious: Yes (Hospitalization, Other)
  Sender: FDA-Public Use
  Company Number: GB-MYLANLABS-2019M1064692

PATIENT
  Age: 60 Year
  Sex: Female

DRUGS (39)
  1. PACLITAXEL. [Suspect]
     Active Substance: PACLITAXEL
     Dosage: 141 MILLIGRAM
     Route: 042
     Dates: start: 20150901, end: 20151006
  2. ACICLOVIR [Concomitant]
     Active Substance: ACYCLOVIR
     Dosage: 5 PERCENT
     Route: 061
     Dates: start: 20160913, end: 20160925
  3. FLUCONAZOLE. [Concomitant]
     Active Substance: FLUCONAZOLE
     Dosage: UNK
     Route: 048
     Dates: start: 20160912, end: 20160912
  4. OMEPRAZOLE. [Concomitant]
     Active Substance: OMEPRAZOLE
     Dosage: 20 MILLIGRAM, QD
     Route: 048
     Dates: end: 20160106
  5. CO-AMOXICLAV                       /01000301/ [Concomitant]
     Active Substance: AMOXICILLIN\CLAVULANATE POTASSIUM
     Dosage: UNK, QD
     Route: 048
     Dates: start: 20150922, end: 20151004
  6. EPIRUBICIN [Suspect]
     Active Substance: EPIRUBICIN
     Indication: HER-2 POSITIVE BREAST CANCER
     Dosage: 50 MILLIGRAM, QW
     Route: 042
     Dates: start: 20160823, end: 20160830
  7. ONDANSETRON [Concomitant]
     Active Substance: ONDANSETRON
     Dosage: 8 MILLIGRAM, QW
     Route: 048
     Dates: start: 20151006, end: 20151215
  8. CHLORHEXIDINE GLUCONATE. [Concomitant]
     Active Substance: CHLORHEXIDINE GLUCONATE
     Dosage: 20 MILLILITER, QD
     Route: 044
     Dates: start: 20160913, end: 20160925
  9. TAZOCIN [Concomitant]
     Active Substance: PIPERACILLIN SODIUM\TAZOBACTAM SODIUM
     Indication: NEUTROPENIA
     Dosage: 18 GRAM, QD
     Route: 042
     Dates: start: 20160911, end: 20160913
  10. HYDROCORTISONE. [Concomitant]
     Active Substance: HYDROCORTISONE
     Dosage: 100 MILLIGRAM, QW
     Route: 042
     Dates: start: 20160906, end: 20160906
  11. DEXAMETHASONE. [Concomitant]
     Active Substance: DEXAMETHASONE
     Indication: ASCITES
     Dosage: 8 MILLIGRAM, QD
     Route: 048
     Dates: start: 20160817, end: 20160925
  12. PACLITAXEL. [Suspect]
     Active Substance: PACLITAXEL
     Indication: HER-2 POSITIVE BREAST CANCER
     Dosage: 111 MILLIGRAM, QW
     Route: 042
     Dates: start: 20151006, end: 20151215
  13. RANITIDINE. [Concomitant]
     Active Substance: RANITIDINE
     Dosage: 50 MILLIGRAM, QW
     Route: 042
     Dates: start: 20150908, end: 20151215
  14. METOCLOPRAMIDE. [Concomitant]
     Active Substance: METOCLOPRAMIDE
     Dosage: 10 MILLIGRAM
     Route: 048
     Dates: start: 20150908, end: 20151215
  15. DEXAMETHASONE. [Concomitant]
     Active Substance: DEXAMETHASONE
     Dosage: 8 MILLIGRAM, QW
     Route: 042
     Dates: start: 20160823, end: 20160906
  16. ACICLOVIR [Concomitant]
     Active Substance: ACYCLOVIR
     Dosage: 25 PERCENT, QD
     Route: 061
     Dates: start: 20160913, end: 20160925
  17. GENTAMYCIN                         /00047101/ [Concomitant]
     Active Substance: GENTAMICIN
     Dosage: UNK
     Route: 042
     Dates: start: 20160825, end: 20160827
  18. ENALAPRIL [Concomitant]
     Active Substance: ENALAPRIL
     Dosage: 10 MILLIGRAM
     Route: 048
     Dates: start: 20060823, end: 20160901
  19. TAXOL [Suspect]
     Active Substance: PACLITAXEL
     Indication: HER-2 POSITIVE BREAST CANCER
     Dosage: TAXOL
     Route: 042
     Dates: start: 20150901, end: 20151006
  20. PACLITAXEL. [Suspect]
     Active Substance: PACLITAXEL
     Dosage: 84 MILLIGRAM
     Route: 042
     Dates: start: 20160906, end: 20160906
  21. RANITIDINE. [Concomitant]
     Active Substance: RANITIDINE
     Dosage: 50 MILLIGRAM, QW
     Route: 042
     Dates: start: 20160906, end: 20160906
  22. ONDANSETRON [Concomitant]
     Active Substance: ONDANSETRON
     Dosage: 8 MILLIGRAM, QW
     Route: 048
     Dates: start: 20150823, end: 20160906
  23. HYDROCORTISONE. [Concomitant]
     Active Substance: HYDROCORTISONE
     Dosage: UNK
     Route: 061
     Dates: start: 20160817, end: 20160913
  24. CHLORPHENAMINE [Concomitant]
     Active Substance: CHLORPHENIRAMINE MALEATE
     Dosage: 10 MILLIGRAM, QW
     Route: 042
     Dates: start: 20160906, end: 20160906
  25. FLUCONAZOLE. [Concomitant]
     Active Substance: FLUCONAZOLE
     Dosage: UNK
     Route: 048
     Dates: start: 20160908, end: 201609
  26. METOCLOPRAMIDE. [Concomitant]
     Active Substance: METOCLOPRAMIDE
     Dosage: 10 MILLIGRAM
     Route: 048
     Dates: start: 20160823, end: 20160906
  27. DEXAMETHASONE. [Concomitant]
     Active Substance: DEXAMETHASONE
     Dosage: 8 MILLIGRAM, QW
     Route: 042
     Dates: start: 20150908, end: 20151215
  28. CHLORPHENAMINE [Concomitant]
     Active Substance: CHLORPHENIRAMINE MALEATE
     Dosage: 10 MILLIGRAM, QW
     Route: 042
     Dates: start: 20150908, end: 20151215
  29. TRASTUZUMAB. [Suspect]
     Active Substance: TRASTUZUMAB
     Indication: HER-2 POSITIVE BREAST CANCER
     Dosage: 600 MILLIGRAM, Q3W
     Route: 058
     Dates: start: 20151124, end: 20160802
  30. PARACETAMOL [Concomitant]
     Active Substance: ACETAMINOPHEN
     Dosage: 2000 MILLIGRAM, QD
     Route: 048
     Dates: end: 20160925
  31. ENOXAPARIN [Concomitant]
     Active Substance: ENOXAPARIN
     Dosage: 40 MILLIGRAM
     Route: 058
     Dates: start: 20160817, end: 20160913
  32. VANCOMYCIN [Concomitant]
     Active Substance: VANCOMYCIN
     Indication: NEUTROPENIA
     Dosage: 1500 MILLIGRAM
     Route: 042
     Dates: start: 20160912, end: 20160912
  33. VANCOMYCIN [Concomitant]
     Active Substance: VANCOMYCIN
     Dosage: UNK
     Route: 042
     Dates: start: 20160912, end: 20160913
  34. ENALAPRIL [Concomitant]
     Active Substance: ENALAPRIL
     Dosage: 10 MILLIGRAM, QD
     Route: 048
     Dates: start: 20060823, end: 20160925
  35. BEPANTHEN                          /00178901/ [Concomitant]
     Active Substance: DEXPANTHENOL
     Dosage: UNK
     Route: 061
     Dates: start: 20160913, end: 20160914
  36. IBUPROFEN. [Concomitant]
     Active Substance: IBUPROFEN
     Dosage: UNK
     Route: 065
     Dates: end: 20160925
  37. GABAPENTIN. [Concomitant]
     Active Substance: GABAPENTIN
     Dosage: 900 MILLIGRAM, QD
     Route: 048
     Dates: start: 20160118, end: 20160925
  38. TAXOL [Suspect]
     Active Substance: PACLITAXEL
     Dosage: TAXOL
     Route: 042
     Dates: start: 20160906, end: 20160906
  39. FRUSEMIDE                          /00032601/ [Concomitant]
     Active Substance: FUROSEMIDE
     Indication: ASCITES
     Dosage: 20 MILLIGRAM, QD
     Route: 048
     Dates: start: 20160817, end: 20160925

REACTIONS (11)
  - Neuropathy peripheral [Recovered/Resolved]
  - Ascites [Recovered/Resolved with Sequelae]
  - White blood cell count decreased [Not Recovered/Not Resolved]
  - Nail infection [Recovered/Resolved]
  - Blood alkaline phosphatase increased [Not Recovered/Not Resolved]
  - Neutropenia [Recovered/Resolved with Sequelae]
  - Blood bilirubin increased [Recovered/Resolved]
  - Aspartate aminotransferase increased [Recovered/Resolved with Sequelae]
  - Diarrhoea [Recovered/Resolved]
  - Epigastric discomfort [Recovered/Resolved]
  - Muscle strain [Recovered/Resolved]

NARRATIVE: CASE EVENT DATE: 20160121
